FAERS Safety Report 23568874 (Version 1)
Quarter: 2024Q1

REPORT INFORMATION
  Report Type: Report from Study
  Country: US (occurrence: US)
  Receive Date: 20240227
  Receipt Date: 20240227
  Transmission Date: 20240410
  Serious: No
  Sender: FDA-Public Use
  Company Number: US-ORG100014127-2023000144

PATIENT
  Age: 73 Year
  Sex: Male

DRUGS (23)
  1. METOPIRONE [Suspect]
     Active Substance: METYRAPONE
     Indication: Hypothalamo-pituitary disorder
     Dosage: 250 MG 6 CAPSULES THREE TIMES DAILY
     Route: 048
     Dates: start: 20201125
  2. ACYCLOVIR TAB 800MG [Concomitant]
     Indication: Product used for unknown indication
  3. AMLODIPINE [Concomitant]
     Active Substance: AMLODIPINE BESYLATE
     Indication: Product used for unknown indication
  4. ARIPIPRAZOLE TAB 5MG [Concomitant]
     Indication: Product used for unknown indication
  5. ATORVASTATIN [Concomitant]
     Active Substance: ATORVASTATIN
     Indication: Product used for unknown indication
  6. CLOPIDOGREL TAB 75MG [Concomitant]
     Indication: Product used for unknown indication
  7. DULOXETINE CAP 60MG [Concomitant]
     Indication: Product used for unknown indication
  8. GABAPENTIN CAP 300M [Concomitant]
     Indication: Product used for unknown indication
  9. HYDRALAZINE [Concomitant]
     Active Substance: HYDRALAZINE HYDROCHLORIDE
     Indication: Product used for unknown indication
  10. ISOSORB MONO TAB 60MG ER [Concomitant]
     Indication: Product used for unknown indication
  11. JARDIANCE TAB 25MG [Concomitant]
     Indication: Product used for unknown indication
  12. KLOR-CON M20 TAB 20MEQ ER [Concomitant]
     Indication: Product used for unknown indication
  13. LEVOTHYROXIN TAB 112MCG AND 88MCG [Concomitant]
     Indication: Product used for unknown indication
  14. LISINOPRIL [Concomitant]
     Active Substance: LISINOPRIL
     Indication: Product used for unknown indication
  15. LOSARTAN POT TAB 50MG [Concomitant]
     Indication: Product used for unknown indication
  16. METOPROL SUC TAB 25MG AND 50 MG ER [Concomitant]
     Indication: Product used for unknown indication
  17. MODAFINIL TAB 100MG [Concomitant]
     Indication: Product used for unknown indication
  18. MOMETASONE CRE 0.1% [Concomitant]
     Indication: Product used for unknown indication
  19. NOVOLOG INJ FLEXPEN [Concomitant]
     Indication: Product used for unknown indication
  20. PRAMIPEXOLE TAB 0.25MG [Concomitant]
     Indication: Product used for unknown indication
  21. PRIMIDONE TAB 250MG [Concomitant]
     Indication: Product used for unknown indication
  22. SHINGRIX INJ 50/0.5ML [Concomitant]
     Indication: Product used for unknown indication
  23. TAMSULOSIN [Concomitant]
     Active Substance: TAMSULOSIN
     Indication: Product used for unknown indication

REACTIONS (2)
  - Drug ineffective [Recovered/Resolved]
  - Off label use [Recovered/Resolved]

NARRATIVE: CASE EVENT DATE: 20201125
